FAERS Safety Report 12626249 (Version 21)
Quarter: 2018Q3

REPORT INFORMATION
  Report Type: Spontaneous
  Country: US (occurrence: US)
  Receive Date: 20160805
  Receipt Date: 20180918
  Transmission Date: 20181010
  Serious: Yes (Hospitalization)
  Sender: FDA-Public Use
  Company Number: US-ACTELION-A-NJ2015-113568

PATIENT
  Age: 44 Year
  Sex: Female
  Weight: 71.2 kg

DRUGS (8)
  1. VELETRI [Suspect]
     Active Substance: EPOPROSTENOL
     Dosage: UNK
     Route: 042
  2. LETAIRIS [Concomitant]
     Active Substance: AMBRISENTAN
  3. VELETRI [Suspect]
     Active Substance: EPOPROSTENOL
     Dosage: UNK
     Route: 042
  4. REVATIO [Concomitant]
     Active Substance: SILDENAFIL CITRATE
  5. WARFARIN [Concomitant]
     Active Substance: WARFARIN
  6. COUMADIN [Concomitant]
     Active Substance: WARFARIN SODIUM
  7. ADCIRCA [Concomitant]
     Active Substance: TADALAFIL
  8. VELETRI [Suspect]
     Active Substance: EPOPROSTENOL
     Indication: PULMONARY ARTERIAL HYPERTENSION
     Dosage: 40 NG/KG, PER MIN
     Route: 042
     Dates: start: 20131018

REACTIONS (27)
  - Hospitalisation [Unknown]
  - Headache [Unknown]
  - Catheter management [Unknown]
  - Device malfunction [Unknown]
  - Pyrexia [Unknown]
  - Sinus pain [Unknown]
  - Clostridium difficile infection [Unknown]
  - Pain in extremity [Unknown]
  - Myalgia [Unknown]
  - Sinusitis [Unknown]
  - Nasopharyngitis [Unknown]
  - Malaise [Unknown]
  - Arthralgia [Unknown]
  - Tenderness [Unknown]
  - Dyspnoea [Unknown]
  - Nausea [Unknown]
  - Tooth infection [Unknown]
  - Scab [Unknown]
  - Lymphadenopathy [Unknown]
  - Back pain [Unknown]
  - Pain in jaw [Unknown]
  - Oropharyngeal pain [Unknown]
  - Weight increased [Unknown]
  - Vomiting [Unknown]
  - Chest discomfort [Unknown]
  - Diarrhoea [Unknown]
  - Musculoskeletal pain [Unknown]

NARRATIVE: CASE EVENT DATE: 20171020
